FAERS Safety Report 18133584 (Version 2)
Quarter: 2020Q4

REPORT INFORMATION
  Report Type: Spontaneous
  Country: US (occurrence: US)
  Receive Date: 20200811
  Receipt Date: 20201013
  Transmission Date: 20210113
  Serious: No
  Sender: FDA-Public Use
  Company Number: US-SCIEGEN-2020SCISPO00164

PATIENT
  Age: 62 Year
  Sex: Female
  Weight: 63 kg

DRUGS (1)
  1. BUPROPION HYDROCHLORIDE. [Suspect]
     Active Substance: BUPROPION HYDROCHLORIDE
     Indication: EX-TOBACCO USER
     Route: 048
     Dates: end: 20200727

REACTIONS (6)
  - Expired product administered [Unknown]
  - Product quality issue [Unknown]
  - Feeling abnormal [Unknown]
  - Product odour abnormal [Unknown]
  - Product administration interrupted [Unknown]
  - Product use in unapproved indication [Unknown]
